FAERS Safety Report 6291050-1 (Version None)
Quarter: 2009Q3

REPORT INFORMATION
  Report Type: 
  Country: None (occurrence: None)
  Receive Date: 20090730
  Receipt Date: 20090721
  Transmission Date: 20100115
  Serious: Yes (Death, Life-Threatening, Hospitalization)
  Sender: FDA-Public Use
  Company Number: FR-PFIZER INC-2008007121

PATIENT
  Age: 63 Year

DRUGS (6)
  1. SUNITINIB MALATE [Suspect]
     Indication: MALIGNANT NEOPLASM OF ISLETS OF LANGERHANS
     Dosage: 12.5 MG, 3X/DAY (3 CAPSULES OF 12.5 MG ONCE A DAY)
     Route: 048
     Dates: start: 20071115, end: 20080121
  2. SERETIDE [Concomitant]
     Route: 055
     Dates: start: 19970101, end: 20080121
  3. PHENOXYMETHYLPENICILLIN [Concomitant]
     Route: 048
     Dates: start: 20070301, end: 20080121
  4. TRAMADOL [Concomitant]
     Route: 048
     Dates: start: 20070801, end: 20080121
  5. ESOMEPRAZOLE MAGNESIUM [Concomitant]
     Route: 048
     Dates: start: 20050101, end: 20080121
  6. HEXETIDINE [Concomitant]
     Route: 048
     Dates: start: 20071123, end: 20080121

REACTIONS (5)
  - CARDIAC FAILURE [None]
  - HEPATIC FUNCTION ABNORMAL [None]
  - HYPERKALAEMIA [None]
  - RENAL FAILURE [None]
  - VENTRICULAR ARRHYTHMIA [None]
